FAERS Safety Report 18047653 (Version 1)
Quarter: 2020Q3

REPORT INFORMATION
  Report Type: Spontaneous
  Country: DE (occurrence: DE)
  Receive Date: 20200721
  Receipt Date: 20200721
  Transmission Date: 20201103
  Serious: Yes (Other)
  Sender: FDA-Public Use
  Company Number: DE-SUN PHARMACEUTICAL INDUSTRIES LTD-2020RR-254183

PATIENT
  Age: 39 Year
  Sex: Male

DRUGS (11)
  1. GEMCITABINE. [Suspect]
     Active Substance: GEMCITABINE
     Indication: TESTICULAR GERM CELL TUMOUR
     Dosage: SECOND?LINE CHEMOTHERAPY WITH 3 CYCLES
     Route: 065
  2. OXALIPLATIN. [Suspect]
     Active Substance: OXALIPLATIN
     Indication: TESTICULAR GERM CELL TUMOUR
     Dosage: SECOND?LINE CHEMOTHERAPY WITH 3 CYCLES
     Route: 065
  3. PACLITAXEL. [Suspect]
     Active Substance: PACLITAXEL
     Indication: TESTICULAR GERM CELL TUMOUR
     Dosage: SECOND?LINE CHEMOTHERAPY WITH 3 CYCLES
     Route: 065
  4. ETOPOSIDE. [Suspect]
     Active Substance: ETOPOSIDE
     Dosage: 4 CYCLES
     Route: 065
  5. IFOSFAMIDE. [Suspect]
     Active Substance: IFOSFAMIDE
     Indication: TESTICULAR GERM CELL TUMOUR
     Dosage: 3 CYCLES
     Route: 065
  6. CARBOPLATIN. [Suspect]
     Active Substance: CARBOPLATIN
     Indication: SALVAGE THERAPY
     Dosage: 2 CYCLES HIGH DOSE
     Route: 065
  7. BLEOMYCIN [Suspect]
     Active Substance: BLEOMYCIN SULFATE
     Indication: TESTICULAR GERM CELL TUMOUR
     Dosage: 4 CYCLES
     Route: 065
  8. ETOPOSIDE. [Suspect]
     Active Substance: ETOPOSIDE
     Indication: SALVAGE THERAPY
  9. CISPLATIN. [Suspect]
     Active Substance: CISPLATIN
     Indication: TESTICULAR GERM CELL TUMOUR
     Dosage: 3 CYCLES
     Route: 065
  10. CISPLATIN. [Suspect]
     Active Substance: CISPLATIN
     Dosage: 4 CYCLES
     Route: 065
  11. ETOPOSIDE. [Suspect]
     Active Substance: ETOPOSIDE
     Indication: TESTICULAR GERM CELL TUMOUR
     Dosage: 3 CYCLES
     Route: 065

REACTIONS (3)
  - Therapy partial responder [Unknown]
  - Drug ineffective [Unknown]
  - Disease progression [Unknown]
